FAERS Safety Report 24401280 (Version 1)
Quarter: 2024Q4

REPORT INFORMATION
  Report Type: Report from Study
  Country: ZA (occurrence: ZA)
  Receive Date: 20241007
  Receipt Date: 20241007
  Transmission Date: 20250115
  Serious: Yes (Hospitalization, Other)
  Sender: ABBVIE
  Company Number: ZA-ABBOTT-2024A-1389145

PATIENT
  Age: 68 Year
  Sex: Male

DRUGS (11)
  1. CREON [Suspect]
     Active Substance: PANCRELIPASE AMYLASE\PANCRELIPASE LIPASE\PANCRELIPASE PROTEASE
     Indication: Pancreatic failure
     Dosage: 300 MG ONE CAPSULE THREE TIMES A DAY?25000
     Route: 048
  2. SIMVASTATIN [Concomitant]
     Active Substance: SIMVASTATIN
     Indication: Blood cholesterol
     Dosage: 10 MG ONE TABLET AT NIGHT
     Route: 048
  3. ECOTRIN [Concomitant]
     Active Substance: ASPIRIN
     Indication: Blood disorder prophylaxis
     Dosage: 81 MG ONE TABLET DAILY
     Route: 048
  4. BUTYLSCOPOLAMINE BROMIDE [Concomitant]
     Active Substance: BUTYLSCOPOLAMINE BROMIDE
     Indication: Product used for unknown indication
     Dosage: 5 MG AS DIRECTED
     Route: 048
  5. ACITOP [Concomitant]
     Indication: Product used for unknown indication
     Dosage: 50 MG AS DIRECTED
  6. PECTROLYTE [Concomitant]
     Indication: Product used for unknown indication
     Dosage: AS DIRECTED
     Route: 048
  7. AMLODIPINE BESYLATE [Concomitant]
     Active Substance: AMLODIPINE BESYLATE
     Indication: Hypertension
     Dosage: 5 MG ONE TABLET DAILY
     Route: 048
  8. INSULIN ASPART\INSULIN DEGLUDEC [Concomitant]
     Active Substance: INSULIN ASPART\INSULIN DEGLUDEC
     Indication: Diabetes mellitus
     Dosage: 100 IU INJECT26UNITS IN THE MORNING THEN 14UNITS AT NIIGHT
     Route: 058
  9. INDAPAMIDE [Concomitant]
     Active Substance: INDAPAMIDE
     Indication: Hypertension
     Dosage: 2.5 MG ONE TABLET DAILY
     Route: 048
  10. DORMONOCT [Concomitant]
     Active Substance: LOPRAZOLAM
     Indication: Insomnia
     Dosage: 2 MG HALF A TABLET AT NIGHT
     Route: 048
  11. MIRTAZAPINE [Concomitant]
     Active Substance: MIRTAZAPINE
     Indication: Depression
     Dosage: 30 MG ONE TABLET AT NIGHT
     Route: 048

REACTIONS (2)
  - Lung neoplasm malignant [Unknown]
  - Hospitalisation [Unknown]
